FAERS Safety Report 7896320 (Version 2)
Quarter: 2017Q3

REPORT INFORMATION
  Report Type: Spontaneous
  Country: JP (occurrence: JP)
  Receive Date: 20110413
  Receipt Date: 20170913
  Transmission Date: 20171128
  Serious: Yes (Death, Other)
  Sender: FDA-Public Use
  Company Number: JP-BRISTOL-MYERS SQUIBB COMPANY-15559958

PATIENT
  Age: 48 Year
  Sex: Male

DRUGS (1)
  1. BARACLUDE [Suspect]
     Active Substance: ENTECAVIR
     Indication: LIVER DISORDER
     Dosage: 2008
     Route: 048
     Dates: start: 20081129

REACTIONS (2)
  - Hepatocellular carcinoma [Fatal]
  - Blood calcium increased [Recovering/Resolving]

NARRATIVE: CASE EVENT DATE: 20110218
